FAERS Safety Report 6343476-5 (Version None)
Quarter: 2009Q3

REPORT INFORMATION
  Report Type: 
  Country: None (occurrence: None)
  Receive Date: 20090908
  Receipt Date: 20090826
  Transmission Date: 20100115
  Serious: Yes (Other)
  Sender: FDA-Public Use
  Company Number: FR-PFIZER INC-2009161525

PATIENT
  Age: 29 Year

DRUGS (20)
  1. NEURONTIN [Suspect]
     Indication: NEUROPATHY PERIPHERAL
     Dosage: 100 MG, 3X/DAY
     Dates: start: 20081201, end: 20090124
  2. BACTRIM [Suspect]
     Dosage: 1 DF, UNK
     Dates: start: 20080101, end: 20090101
  3. CORTANCYL [Concomitant]
     Dosage: 30 MG, 1X/DAY
     Dates: start: 20081101
  4. PROGRAF [Concomitant]
     Dosage: UNK
  5. IMUREL [Concomitant]
     Dosage: UNK
  6. CALTRATE + D [Concomitant]
     Dosage: 2 DF, 1X/DAY
  7. A 313 [Concomitant]
     Dosage: 1 DF, WEEKLY
  8. TOCOPHEROL [Concomitant]
     Dosage: 1 DF, 1X/DAY
  9. VALCYTE [Concomitant]
     Dosage: UNK
  10. CREON [Concomitant]
     Dosage: 3 DF, 4X/DAY
  11. NEORAL [Concomitant]
     Dosage: 1 UNK, UNK
  12. DAFALGAN [Concomitant]
     Dosage: 2 DF, 4X/DAY, AS NEEDED
  13. AMLODIPINE BESILATE [Concomitant]
     Dosage: 1 DF, 1X/DAY
  14. FOSAMAX [Concomitant]
     Dosage: 1 DF, WEEKLY
  15. FUNGIZONE [Concomitant]
     Dosage: 15 ML, 3X/DAY
  16. INEXIUM [Concomitant]
     Dosage: 1 DF, 1X/DAY
  17. DOMPERIDONE [Concomitant]
     Dosage: 1 DF, 3X/DAY
  18. ALPRAZOLAM [Concomitant]
     Dosage: 1 DF, 1X/DAY
  19. MAG 2 [Concomitant]
     Dosage: 1 DF, 3X/DAY
  20. COLIMYCINE [Concomitant]
     Dosage: 2 DF, 2X/DAY

REACTIONS (11)
  - ANXIETY [None]
  - DECREASED APPETITE [None]
  - DEPRESSED MOOD [None]
  - FATIGUE [None]
  - HYPERKERATOSIS [None]
  - MIGRAINE WITH AURA [None]
  - PAIN [None]
  - SKIN EXFOLIATION [None]
  - SKIN NECROSIS [None]
  - SOMNOLENCE [None]
  - TELANGIECTASIA [None]
